FAERS Safety Report 9768432 (Version 2)
Quarter: 2013Q4

REPORT INFORMATION
  Report Type: Spontaneous
  Country: US (occurrence: US)
  Receive Date: 20131217
  Receipt Date: 20131220
  Transmission Date: 20140711
  Serious: Yes (Hospitalization)
  Sender: FDA-Public Use
  Company Number: US-ASTRAZENECA-2013SE90520

PATIENT
  Age: 578 Month
  Sex: Female
  Weight: 61.7 kg

DRUGS (5)
  1. SYMBICORT [Suspect]
     Indication: ASTHMA
     Dosage: 1 PUFF TWICE A DAY
     Route: 055
     Dates: start: 201311, end: 201312
  2. AMLODIPINE [Concomitant]
     Indication: HYPERTENSION
     Dates: start: 20131110
  3. HYDROCODONE [Concomitant]
     Indication: PAIN
  4. PHENERGAN [Concomitant]
     Indication: NAUSEA
     Dosage: 1-2 TABS PRN
  5. CETIRIZINE [Concomitant]
     Indication: MULTIPLE ALLERGIES

REACTIONS (12)
  - Pneumonia [Unknown]
  - Eye pain [Not Recovered/Not Resolved]
  - Ocular hyperaemia [Unknown]
  - Epistaxis [Unknown]
  - House dust allergy [Unknown]
  - Mycotic allergy [Unknown]
  - Nausea [Unknown]
  - Throat tightness [Unknown]
  - Oropharyngeal pain [Unknown]
  - Drug hypersensitivity [Unknown]
  - Headache [Unknown]
  - Off label use [Unknown]
